FAERS Safety Report 7130799-5 (Version None)
Quarter: 2010Q4

REPORT INFORMATION
  Report Type: 
  Country: None (occurrence: None)
  Receive Date: 20101201
  Receipt Date: 20101123
  Transmission Date: 20110411
  Serious: Yes (Hospitalization)
  Sender: FDA-Public Use
  Company Number: PHHO2010FR17734

PATIENT
  Sex: Male
  Weight: 90 kg

DRUGS (3)
  1. CERTICAN [Suspect]
     Indication: HEART TRANSPLANT
     Dosage: 1.5 MG
     Route: 048
     Dates: start: 20090924, end: 20100728
  2. NEORAL [Suspect]
     Indication: HEART TRANSPLANT
     Dosage: 50 MG
     Route: 048
     Dates: start: 20070908
  3. PREDNISOLONE [Suspect]
     Indication: HEART TRANSPLANT
     Dosage: 10 MG
     Route: 048
     Dates: start: 20090918

REACTIONS (12)
  - ABDOMINAL PAIN [None]
  - BILIARY DRAINAGE [None]
  - CHOLANGITIS [None]
  - CHOLECYSTECTOMY [None]
  - CHOLECYSTITIS ACUTE [None]
  - CHOLELITHIASIS [None]
  - CHOLESTASIS [None]
  - GALLBLADDER DISORDER [None]
  - GALLBLADDER OEDEMA [None]
  - HIGH FREQUENCY ABLATION [None]
  - HYPERBILIRUBINAEMIA [None]
  - PYREXIA [None]
